FAERS Safety Report 19100364 (Version 1)
Quarter: 2021Q2

REPORT INFORMATION
  Report Type: Spontaneous
  Country: AT (occurrence: AT)
  Receive Date: 20210407
  Receipt Date: 20210407
  Transmission Date: 20210717
  Serious: Yes (Other)
  Sender: FDA-Public Use
  Company Number: AT-JNJFOC-20210354848

PATIENT
  Age: 46 Year
  Sex: Female

DRUGS (21)
  1. SPRAVATO [Suspect]
     Active Substance: ESKETAMINE
     Dates: start: 20210128, end: 20210128
  2. LYRICA [Suspect]
     Active Substance: PREGABALIN
     Dates: start: 20210128, end: 20210130
  3. VENLAFAXINE [Concomitant]
     Active Substance: VENLAFAXINE HYDROCHLORIDE
     Dates: start: 20210107, end: 20210107
  4. SPRAVATO [Suspect]
     Active Substance: ESKETAMINE
     Dates: start: 20210211, end: 20210211
  5. MIRTAZAPIN [Suspect]
     Active Substance: MIRTAZAPINE
     Dates: start: 202102
  6. LYRICA [Suspect]
     Active Substance: PREGABALIN
     Indication: PRODUCT USED FOR UNKNOWN INDICATION
     Route: 065
     Dates: start: 20210121, end: 20210127
  7. LYRICA [Suspect]
     Active Substance: PREGABALIN
     Dates: start: 20210131, end: 20210204
  8. SEROQUEL [Suspect]
     Active Substance: QUETIAPINE FUMARATE
     Indication: PRODUCT USED FOR UNKNOWN INDICATION
     Route: 065
     Dates: start: 20210118, end: 202102
  9. MIRTAZAPIN [Suspect]
     Active Substance: MIRTAZAPINE
     Indication: PRODUCT USED FOR UNKNOWN INDICATION
     Route: 065
     Dates: start: 20210201, end: 202102
  10. LYRICA [Suspect]
     Active Substance: PREGABALIN
     Dates: start: 20210209, end: 20210218
  11. LYRICA [Suspect]
     Active Substance: PREGABALIN
     Dates: start: 20210219
  12. VENLAFAXINE [Concomitant]
     Active Substance: VENLAFAXINE HYDROCHLORIDE
     Dates: start: 20210115
  13. SPRAVATO [Suspect]
     Active Substance: ESKETAMINE
     Dates: start: 20210126, end: 20210126
  14. SPRAVATO [Suspect]
     Active Substance: ESKETAMINE
     Dates: start: 20210203, end: 20210203
  15. LYRICA [Suspect]
     Active Substance: PREGABALIN
     Dates: start: 20210119, end: 20210120
  16. SPRAVATO [Suspect]
     Active Substance: ESKETAMINE
     Dates: start: 20210209, end: 20210209
  17. VENLAFAXINE [Concomitant]
     Active Substance: VENLAFAXINE HYDROCHLORIDE
     Dates: start: 20210108, end: 20210114
  18. SPRAVATO [Suspect]
     Active Substance: ESKETAMINE
     Indication: DEPRESSION
     Dates: start: 20210121, end: 20210121
  19. SPRAVATO [Suspect]
     Active Substance: ESKETAMINE
     Dates: start: 20210205, end: 20210205
  20. SPRAVATO [Suspect]
     Active Substance: ESKETAMINE
     Dates: start: 20210223, end: 20210223
  21. LYRICA [Suspect]
     Active Substance: PREGABALIN
     Dates: start: 20210205, end: 20210208

REACTIONS (2)
  - Panic attack [Recovered/Resolved]
  - Dissociation [Recovered/Resolved]

NARRATIVE: CASE EVENT DATE: 20210223
